FAERS Safety Report 10445289 (Version 1)
Quarter: 2014Q3

REPORT INFORMATION
  Report Type: Spontaneous
  Country: JP (occurrence: JP)
  Receive Date: 20140910
  Receipt Date: 20140910
  Transmission Date: 20150326
  Serious: Yes (Hospitalization, Other)
  Sender: FDA-Public Use
  Company Number: JP-SA-2014SA122655

PATIENT
  Age: 76 Year
  Sex: Male

DRUGS (10)
  1. FLUOROURACIL. [Suspect]
     Active Substance: FLUOROURACIL
     Indication: COLORECTAL CANCER
     Route: 065
  2. LEUCOVORIN [Suspect]
     Active Substance: LEUCOVORIN
     Route: 065
  3. BEVACIZUMAB [Suspect]
     Active Substance: BEVACIZUMAB
     Indication: COLORECTAL CANCER
     Route: 065
  4. FLUOROURACIL. [Suspect]
     Active Substance: FLUOROURACIL
     Indication: COLORECTAL CANCER
     Route: 065
  5. FLUOROURACIL. [Suspect]
     Active Substance: FLUOROURACIL
     Indication: COLORECTAL CANCER
     Route: 065
  6. BEVACIZUMAB [Suspect]
     Active Substance: BEVACIZUMAB
     Indication: COLORECTAL CANCER
     Route: 065
  7. LEUCOVORIN [Suspect]
     Active Substance: LEUCOVORIN
     Route: 065
  8. OXALIPLATIN. [Suspect]
     Active Substance: OXALIPLATIN
     Indication: COLORECTAL CANCER
     Route: 065
  9. OXALIPLATIN. [Suspect]
     Active Substance: OXALIPLATIN
     Indication: COLORECTAL CANCER
     Route: 065
  10. LEUCOVORIN [Suspect]
     Active Substance: LEUCOVORIN
     Route: 065

REACTIONS (15)
  - Hepatitis B core antigen positive [Recovered/Resolved]
  - Alanine aminotransferase increased [Recovered/Resolved]
  - Neuropathy peripheral [Unknown]
  - Hepatitis B core antibody positive [Recovered/Resolved]
  - Hepatic necrosis [Recovered/Resolved]
  - Prothrombin level decreased [Recovered/Resolved]
  - Hepatitis acute [Recovered/Resolved]
  - Hepatitis B [Recovered/Resolved]
  - Aspartate aminotransferase increased [Recovered/Resolved]
  - Blood bilirubin increased [Recovered/Resolved]
  - Hepatitis B antigen positive [Recovered/Resolved]
  - Fatigue [Recovered/Resolved]
  - Hepatic fibrosis [Recovered/Resolved]
  - Hepatitis B e antibody positive [Recovered/Resolved]
  - Hepatitis B DNA increased [Recovered/Resolved]
